FAERS Safety Report 12599640 (Version 1)
Quarter: 2016Q3

REPORT INFORMATION
  Report Type: Spontaneous
  Country: US (occurrence: US)
  Receive Date: 20160727
  Receipt Date: 20160727
  Transmission Date: 20161109
  Serious: Yes (Other)
  Sender: FDA-Public Use
  Company Number: US-IMPAX LABORATORIES, INC-2016-IPXL-00774

PATIENT
  Age: 65 Year
  Sex: Female

DRUGS (1)
  1. DIVALPROEX SODIUM ER [Suspect]
     Active Substance: DIVALPROEX SODIUM
     Indication: SEIZURE
     Dosage: AVERAGE DAILY DOSE OF 1 G
     Route: 065

REACTIONS (3)
  - Cognitive disorder [Recovered/Resolved]
  - Parkinsonism [Recovered/Resolved]
  - Dementia [Recovered/Resolved]
